FAERS Safety Report 10051225 (Version 2)
Quarter: 2014Q2

REPORT INFORMATION
  Report Type: Spontaneous
  Country: US (occurrence: US)
  Receive Date: 20140401
  Receipt Date: 20140506
  Transmission Date: 20141212
  Serious: No
  Sender: FDA-Public Use
  Company Number: US-BAYER-2014-046646

PATIENT
  Age: 72 Year
  Sex: Male

DRUGS (2)
  1. XOFIGO [Suspect]
     Indication: PROSTATE CANCER
     Dosage: UNK
     Route: 042
     Dates: start: 20140227
  2. ZOMETA [Concomitant]

REACTIONS (1)
  - Pain in extremity [Not Recovered/Not Resolved]
